FAERS Safety Report 4600523-6 (Version None)
Quarter: 2005Q1

REPORT INFORMATION
  Report Type: 
  Country: None (occurrence: None)
  Receive Date: 20050304
  Receipt Date: 20050222
  Transmission Date: 20050727
  Serious: Yes (Other)
  Sender: FDA-Public Use
  Company Number: 2005014594

PATIENT
  Age: 56 Year
  Sex: Female
  Weight: 113.3993 kg

DRUGS (1)
  1. CELEBREX [Suspect]
     Indication: ARTHRITIS
     Dosage: (3 IN 1 D), ORAL
     Route: 048
     Dates: start: 20010501, end: 20040701

REACTIONS (4)
  - INFECTION [None]
  - MOVEMENT DISORDER [None]
  - NEUROLOGICAL SYMPTOM [None]
  - RASH [None]
